FAERS Safety Report 6804389-5 (Version None)
Quarter: 2010Q2

REPORT INFORMATION
  Report Type: 
  Country: None (occurrence: None)
  Receive Date: 20100628
  Receipt Date: 20070410
  Transmission Date: 20101027
  Serious: Yes (Other)
  Sender: FDA-Public Use
  Company Number: US-PFIZER INC-2007001467

PATIENT
  Age: 19 Year
  Sex: Female
  Weight: 47.6 kg

DRUGS (2)
  1. GEODON [Suspect]
     Indication: OPPOSITIONAL DEFIANT DISORDER
     Route: 048
     Dates: start: 20050817, end: 20060823
  2. INDERAL [Concomitant]

REACTIONS (3)
  - DYSKINESIA [None]
  - PROTRUSION TONGUE [None]
  - TARDIVE DYSKINESIA [None]
